FAERS Safety Report 8498693-5 (Version None)
Quarter: 2012Q3

REPORT INFORMATION
  Report Type: 
  Country: None (occurrence: None)
  Receive Date: 20120709
  Receipt Date: 20120627
  Transmission Date: 20120928
  Serious: No
  Sender: FDA-Public Use
  Company Number: US-AMGEN-USASP2012039849

PATIENT
  Age: 40 Year
  Sex: Female

DRUGS (1)
  1. ENBREL [Suspect]
     Indication: PSORIATIC ARTHROPATHY
     Dosage: 50 MG, QWK
     Dates: start: 20030428

REACTIONS (8)
  - PYREXIA [None]
  - FEELING ABNORMAL [None]
  - COSTOCHONDRITIS [None]
  - ASTHENIA [None]
  - NEPHROLITHIASIS [None]
  - LETHARGY [None]
  - UPPER RESPIRATORY TRACT INFECTION [None]
  - FATIGUE [None]
